FAERS Safety Report 23206166 (Version 2)
Quarter: 2023Q4

REPORT INFORMATION
  Report Type: Other
  Country: US (occurrence: None)
  Receive Date: 20231120
  Receipt Date: 20231128
  Transmission Date: 20240110
  Serious: Yes (Other)
  Sender: FDA-Public Use
  Company Number: US-ROCHE-3442568

PATIENT
  Age: 56 Year
  Sex: Female
  Weight: 86.26 kg

DRUGS (4)
  1. OCREVUS [Suspect]
     Active Substance: OCRELIZUMAB
     Indication: Primary progressive multiple sclerosis
     Route: 042
     Dates: start: 2021
  2. OCREVUS [Suspect]
     Active Substance: OCRELIZUMAB
     Dosage: INFUSE 300 MG ON DAY 1 AND 15, THEN 600 MG Q 6 MONTHS?DATE OF TREATMENT: , DOT: 07/NOV/2022, 08/MAY/
     Route: 042
     Dates: start: 20221024
  3. BACLOFEN [Concomitant]
     Active Substance: BACLOFEN
  4. CARBAMAZEPINE [Concomitant]
     Active Substance: CARBAMAZEPINE

REACTIONS (7)
  - Fall [Unknown]
  - Pain [Not Recovered/Not Resolved]
  - Trigeminal neuralgia [Recovering/Resolving]
  - Balance disorder [Not Recovered/Not Resolved]
  - Gait disturbance [Not Recovered/Not Resolved]
  - Urinary tract infection [Recovered/Resolved]
  - Fatigue [Recovered/Resolved]

NARRATIVE: CASE EVENT DATE: 20210801
